FAERS Safety Report 22903001 (Version 3)
Quarter: 2023Q4

REPORT INFORMATION
  Report Type: Report from Study
  Country: US (occurrence: US)
  Receive Date: 20230904
  Receipt Date: 20231219
  Transmission Date: 20240110
  Serious: Yes (Other)
  Sender: FDA-Public Use
  Company Number: US-ABBVIE-5388374

PATIENT
  Sex: Female

DRUGS (6)
  1. CREON [Suspect]
     Active Substance: PANCRELIPASE AMYLASE\PANCRELIPASE LIPASE\PANCRELIPASE PROTEASE
     Indication: Product used for unknown indication
     Dosage: LAST ADMIN DATE- 2022
     Route: 048
     Dates: start: 20220701
  2. CREON [Suspect]
     Active Substance: PANCRELIPASE AMYLASE\PANCRELIPASE LIPASE\PANCRELIPASE PROTEASE
     Indication: Product used for unknown indication
     Dosage: DOSE 36000 ?EVERY MEAL AND SNACKS
     Route: 048
     Dates: start: 20220926
  3. PANTOPRAZOLE [Concomitant]
     Active Substance: PANTOPRAZOLE
     Indication: Product used for unknown indication
     Route: 048
     Dates: start: 20230120
  4. LANTUS [Concomitant]
     Active Substance: INSULIN GLARGINE
     Indication: Product used for unknown indication
     Dosage: 2-3 UNIT DAILY
     Dates: start: 20230119
  5. HUMALOG [Concomitant]
     Active Substance: INSULIN LISPRO
     Indication: Product used for unknown indication
     Dosage: 0-4 UNIT PER DAY?AS NEEDED
     Dates: start: 20230119
  6. ONDANSETRON [Concomitant]
     Active Substance: ONDANSETRON
     Indication: Product used for unknown indication
     Dosage: PILL OR TABLET AS NEEDED?4-8MG
     Dates: start: 20230606

REACTIONS (3)
  - Pancreatitis chronic [Unknown]
  - Chronic hepatitis [Unknown]
  - Diabetes mellitus [Unknown]
